FAERS Safety Report 16946668 (Version 5)
Quarter: 2023Q1

REPORT INFORMATION
  Report Type: Spontaneous
  Country: US (occurrence: US)
  Receive Date: 20191022
  Receipt Date: 20230217
  Transmission Date: 20230417
  Serious: No
  Sender: FDA-Public Use
  Company Number: US-PFIZER INC-2019450999

PATIENT
  Age: 53 Year
  Sex: Male

DRUGS (1)
  1. XELJANZ XR [Suspect]
     Active Substance: TOFACITINIB CITRATE
     Indication: Rheumatoid arthritis
     Dosage: 11 MG, 1X/DAY
     Route: 048
     Dates: start: 2020

REACTIONS (3)
  - Eye disorder [Unknown]
  - Pain [Unknown]
  - Product dose omission in error [Unknown]
